FAERS Safety Report 8099921-0 (Version None)
Quarter: 2012Q1

REPORT INFORMATION
  Report Type: 
  Country: None (occurrence: None)
  Receive Date: 20120129
  Receipt Date: 20111214
  Transmission Date: 20120608
  Serious: No
  Sender: FDA-Public Use
  Company Number: US-ABBOTT-11P-163-0878053-00

PATIENT
  Sex: Female
  Weight: 108.96 kg

DRUGS (8)
  1. OMEPRAZOLE [Concomitant]
     Indication: GASTROOESOPHAGEAL REFLUX DISEASE
  2. ASPIRIN [Concomitant]
     Indication: PRODUCT USED FOR UNKNOWN INDICATION
  3. LEVOTHYROXINE SODIUM [Concomitant]
     Indication: HYPOTHYROIDISM
  4. CITALOPRAM [Concomitant]
     Indication: ANXIETY
  5. CRESTOR [Concomitant]
     Indication: BLOOD CHOLESTEROL INCREASED
  6. HUMIRA [Suspect]
     Indication: PSORIASIS
     Dates: start: 20111024, end: 20111123
  7. METOPROLOL TARTRATE [Concomitant]
     Indication: HYPERTENSION
     Dosage: 50-25MG BID
  8. MULTI-VITAMIN [Concomitant]
     Indication: PRODUCT USED FOR UNKNOWN INDICATION

REACTIONS (6)
  - PSORIASIS [None]
  - DRUG INEFFECTIVE [None]
  - STAPHYLOCOCCAL INFECTION [None]
  - HEADACHE [None]
  - SINUSITIS [None]
  - ARTHRALGIA [None]
